FAERS Safety Report 6567537-0 (Version None)
Quarter: 2010Q1

REPORT INFORMATION
  Report Type: 
  Country: None (occurrence: None)
  Receive Date: 20100202
  Receipt Date: 20100120
  Transmission Date: 20100710
  Serious: Yes (Hospitalization, Disabling)
  Sender: FDA-Public Use
  Company Number: DK-GENENTECH-282811

PATIENT
  Sex: Male

DRUGS (1)
  1. ACTIVASE [Suspect]
     Indication: CEREBROVASCULAR ACCIDENT
     Dosage: 80-90 MG
     Route: 042
     Dates: start: 20080627

REACTIONS (4)
  - BLINDNESS [None]
  - HAEMORRHAGIC TRANSFORMATION STROKE [None]
  - HEMIPARESIS [None]
  - ISCHAEMIC CEREBRAL INFARCTION [None]
